FAERS Safety Report 5912952-9 (Version None)
Quarter: 2008Q4

REPORT INFORMATION
  Report Type: 
  Country: None (occurrence: None)
  Receive Date: 20081008
  Receipt Date: 20080926
  Transmission Date: 20090506
  Serious: Yes (Hospitalization, Other)
  Sender: FDA-Public Use
  Company Number: BR-PFIZER INC-2008082142

PATIENT
  Sex: Female
  Weight: 64 kg

DRUGS (8)
  1. MARAVIROC [Suspect]
     Indication: HIV INFECTION
     Route: 048
     Dates: start: 20080313
  2. ROSUVASTATIN [Concomitant]
     Route: 048
     Dates: start: 20080508
  3. TENOFOVIR [Concomitant]
     Route: 048
     Dates: start: 20040201
  4. LAMIVUDINE [Concomitant]
     Route: 048
     Dates: start: 20040201
  5. DARUNAVIR [Concomitant]
     Route: 048
     Dates: start: 20080327
  6. RITONAVIR [Concomitant]
     Route: 048
     Dates: start: 20080313
  7. LEVOTHYROXINE SODIUM [Concomitant]
     Route: 048
     Dates: start: 19950101
  8. PROPRANOLOL [Concomitant]
     Route: 048
     Dates: start: 20080508, end: 20080810

REACTIONS (1)
  - MYOCARDIAL ISCHAEMIA [None]
